FAERS Safety Report 9266711 (Version 2)
Quarter: 2013Q2

REPORT INFORMATION
  Report Type: Spontaneous
  Country: US (occurrence: US)
  Receive Date: 20130502
  Receipt Date: 20130516
  Transmission Date: 20140414
  Serious: Yes (Other)
  Sender: FDA-Public Use
  Company Number: US-NOVOPROD-376677

PATIENT
  Age: 83 Year
  Sex: Male
  Weight: 77.1 kg

DRUGS (5)
  1. VICTOZA [Suspect]
     Indication: TYPE 2 DIABETES MELLITUS
     Dosage: 0.6 MG QD
     Route: 058
     Dates: start: 20121108, end: 20121118
  2. NOVOLOG [Concomitant]
     Indication: TYPE 2 DIABETES MELLITUS
     Dosage: IN PM
     Route: 058
     Dates: start: 20121120
  3. NOVOLOG MIX 70/30 FLEXPEN [Concomitant]
     Indication: TYPE 2 DIABETES MELLITUS
     Dosage: IN AM
     Route: 058
     Dates: start: 201211
  4. LANTUS [Concomitant]
     Indication: TYPE 2 DIABETES MELLITUS
     Dosage: IN AM
     Route: 058
     Dates: start: 20121120
  5. LANTUS [Concomitant]
     Dosage: IN PM

REACTIONS (1)
  - Pancreatic carcinoma [Not Recovered/Not Resolved]
